FAERS Safety Report 21812303 (Version 1)
Quarter: 2022Q4

REPORT INFORMATION
  Report Type: Spontaneous
  Country: US (occurrence: None)
  Receive Date: 20221230
  Receipt Date: 20221230
  Transmission Date: 20230113
  Serious: No
  Sender: FDA-Public Use
  Company Number: None

PATIENT
  Age: 45 Year
  Sex: Female
  Weight: 76.05 kg

DRUGS (1)
  1. MOUNJARO [Suspect]
     Active Substance: TIRZEPATIDE
     Dosage: OTHER QUANTITY : 1 INJECTION(S);?OTHER FREQUENCY : ONCE WEEKLY;?
     Route: 030
     Dates: start: 20220901, end: 20221226

REACTIONS (9)
  - Adverse drug reaction [None]
  - Abdominal pain upper [None]
  - Therapy cessation [None]
  - Nausea [None]
  - Flatulence [None]
  - Dyspepsia [None]
  - Eructation [None]
  - Fatigue [None]
  - Decreased activity [None]

NARRATIVE: CASE EVENT DATE: 20221227
